FAERS Safety Report 12948369 (Version 3)
Quarter: 2016Q4

REPORT INFORMATION
  Report Type: Report from Study
  Country: TW (occurrence: TW)
  Receive Date: 20161116
  Receipt Date: 20161206
  Transmission Date: 20170207
  Serious: Yes (Other)
  Sender: FDA-Public Use
  Company Number: TW-EMD SERONO-8117752

PATIENT
  Age: 14 Year
  Sex: Female
  Weight: 56 kg

DRUGS (2)
  1. SAIZEN [Suspect]
     Active Substance: SOMATROPIN
     Dates: end: 20161110
  2. SAIZEN [Suspect]
     Active Substance: SOMATROPIN
     Indication: GROWTH HORMONE DEFICIENCY
     Route: 058
     Dates: start: 201306

REACTIONS (3)
  - Off label use [Unknown]
  - Fall [Unknown]
  - Benign bone neoplasm [Unknown]

NARRATIVE: CASE EVENT DATE: 20161020
